FAERS Safety Report 11347392 (Version 2)
Quarter: 2015Q4

REPORT INFORMATION
  Report Type: Spontaneous
  Country: US (occurrence: US)
  Receive Date: 20150803
  Receipt Date: 20151104
  Transmission Date: 20160304
  Serious: No
  Sender: FDA-Public Use
  Company Number: US-ELI_LILLY_AND_COMPANY-US201106000146

PATIENT
  Age: 61 Year
  Sex: Female

DRUGS (3)
  1. FORTEO [Suspect]
     Active Substance: TERIPARATIDE
     Dosage: 20 UG, DAILY (1/D)
  2. ZYPREXA [Suspect]
     Active Substance: OLANZAPINE
     Indication: DECREASED APPETITE
     Dosage: 5 MG, DAILY (1/D)
  3. ZYPREXA [Suspect]
     Active Substance: OLANZAPINE
     Dosage: 0.5 DF, DAILY (1/D)
     Dates: start: 201105

REACTIONS (7)
  - Chest pain [Unknown]
  - Vision blurred [Unknown]
  - Off label use [Unknown]
  - Sleep disorder [Unknown]
  - Feeling abnormal [Unknown]
  - Pain [Unknown]
  - Wrong technique in product usage process [Unknown]
